FAERS Safety Report 6320498-1 (Version None)
Quarter: 2009Q3

REPORT INFORMATION
  Report Type: 
  Country: None (occurrence: None)
  Receive Date: 20090822
  Receipt Date: 20081113
  Transmission Date: 20100115
  Serious: No
  Sender: FDA-Public Use
  Company Number: US-ABBOTT-08P-163-0487821-00

PATIENT
  Age: 64 Year
  Sex: Male
  Weight: 78.542 kg

DRUGS (2)
  1. NIASPAN [Suspect]
     Indication: HYPOLIPIDAEMIA
     Dates: start: 20080901
  2. NIASPAN [Suspect]
     Indication: HYPERCHOLESTEROLAEMIA
     Dates: start: 20081001

REACTIONS (2)
  - FLUSHING [None]
  - NOCTURIA [None]
